FAERS Safety Report 8057824-1 (Version None)
Quarter: 2012Q1

REPORT INFORMATION
  Report Type: 
  Country: None (occurrence: None)
  Receive Date: 20120120
  Receipt Date: 20120113
  Transmission Date: 20120608
  Serious: No
  Sender: FDA-Public Use
  Company Number: US-BIOGENIDEC-2012BI001839

PATIENT
  Age: 47 Year
  Sex: Male

DRUGS (1)
  1. TYSABRI [Suspect]
     Indication: MULTIPLE SCLEROSIS
     Route: 042
     Dates: start: 20100823, end: 20111107

REACTIONS (5)
  - DECREASED IMMUNE RESPONSIVENESS [None]
  - HEADACHE [None]
  - PAIN [None]
  - NASOPHARYNGITIS [None]
  - DEPRESSION [None]
